FAERS Safety Report 15392279 (Version 1)
Quarter: 2018Q3

REPORT INFORMATION
  Report Type: Spontaneous
  Country: AR (occurrence: AR)
  Receive Date: 20180917
  Receipt Date: 20180917
  Transmission Date: 20181010
  Serious: Yes (Death, Other)
  Sender: FDA-Public Use
  Company Number: AR-ACTELION-A-CH2018-178963

PATIENT
  Age: 16 Year
  Sex: Female
  Weight: 37 kg

DRUGS (2)
  1. TRACLEER [Suspect]
     Active Substance: BOSENTAN
     Indication: PRODUCT USED FOR UNKNOWN INDICATION
     Dosage: 62.5 MG, BID
     Route: 048
     Dates: start: 20130813
  2. SILDENAFIL. [Concomitant]
     Active Substance: SILDENAFIL
     Dosage: 25 MG, BID
     Route: 048
     Dates: start: 20070830

REACTIONS (7)
  - Ventricular dysfunction [Fatal]
  - Surgery [Unknown]
  - Cyanosis [Not Recovered/Not Resolved]
  - Right ventricular failure [Fatal]
  - Pulmonary arterial pressure abnormal [Unknown]
  - Dyspnoea [Not Recovered/Not Resolved]
  - Hypoxia [Not Recovered/Not Resolved]

NARRATIVE: CASE EVENT DATE: 2017
